FAERS Safety Report 22200267 (Version 2)
Quarter: 2024Q2

REPORT INFORMATION
  Report Type: Other
  Country: ZA (occurrence: None)
  Receive Date: 20230412
  Receipt Date: 20240429
  Transmission Date: 20240716
  Serious: Yes (Other)
  Sender: FDA-Public Use
  Company Number: ZA-ROCHE-3324827

PATIENT
  Sex: Male

DRUGS (1)
  1. OCREVUS [Suspect]
     Active Substance: OCRELIZUMAB
     Indication: Primary progressive multiple sclerosis
     Dosage: THEREAFTER 600 MG EVERY 6 MONTHS
     Route: 041
     Dates: start: 20220906

REACTIONS (6)
  - Expanded disability status scale score increased [Unknown]
  - Fatigue [Unknown]
  - Dysdiadochokinesis [Unknown]
  - Coordination abnormal [Unknown]
  - Sensory disturbance [Unknown]
  - Cognitive disorder [Unknown]
